FAERS Safety Report 7297154-9 (Version None)
Quarter: 2011Q1

REPORT INFORMATION
  Report Type: 
  Country: None (occurrence: None)
  Receive Date: 20110216
  Receipt Date: 20110215
  Transmission Date: 20110831
  Serious: No
  Sender: FDA-Public Use
  Company Number: US-PFIZER INC-2010161357

PATIENT
  Sex: Female
  Weight: 57.596 kg

DRUGS (2)
  1. ESTRING [Suspect]
     Indication: CYSTITIS
     Dosage: 2 MG, UNK
  2. ESTRING [Suspect]
     Indication: VULVOVAGINAL DRYNESS
     Dosage: 2 MG, UNK
     Route: 067
     Dates: start: 20090501, end: 20101101

REACTIONS (1)
  - VULVOVAGINAL DISCOMFORT [None]
